FAERS Safety Report 5780026-6 (Version None)
Quarter: 2008Q2

REPORT INFORMATION
  Report Type: 
  Country: None (occurrence: None)
  Receive Date: 20080613
  Receipt Date: 20071211
  Transmission Date: 20081010
  Serious: Yes (Hospitalization)
  Sender: FDA-Public Use
  Company Number: Q07-017

PATIENT
  Sex: Male
  Weight: 96 kg

DRUGS (15)
  1. SAMARIUM 153 LEXIDRONAM [Suspect]
     Indication: PROSTATE CANCER METASTATIC
     Dosage: 1 MCI/KG Q9WEEKS
     Dates: start: 20071115
  2. DOCETAXEL [Suspect]
     Indication: PROSTATE CANCER METASTATIC
     Dosage: 75 MG/M2
     Dates: start: 20071116
  3. ACETAMINOPHEN [Concomitant]
  4. AMBIEN [Concomitant]
  5. AMLODIPINE [Concomitant]
  6. ASCORBIC ACID [Concomitant]
  7. DEXAMETHASONE [Concomitant]
  8. ESOMEPRAZOLE MAGNESIUM [Concomitant]
  9. FILGRASTIM [Concomitant]
  10. LUPRON [Concomitant]
  11. MULTI-VITAMINS [Concomitant]
  12. PREDNISONE TAB [Concomitant]
  13. SILDENAFIL CITRATE [Concomitant]
  14. TOCOPHEROL CONCENTRATE CAP [Concomitant]
  15. ZOMETA [Concomitant]

REACTIONS (1)
  - TACHYCARDIA [None]
